FAERS Safety Report 19654723 (Version 33)
Quarter: 2025Q4

REPORT INFORMATION
  Report Type: Spontaneous
  Country: GB (occurrence: GB)
  Receive Date: 20210804
  Receipt Date: 20251121
  Transmission Date: 20260117
  Serious: Yes (Hospitalization, Other)
  Sender: BAUSCH AND LOMB
  Company Number: GB-PFIZER INC-2019511224

PATIENT
  Age: 68 Year
  Sex: Female
  Weight: 92 kg

DRUGS (105)
  1. VENLAFAXINE [Suspect]
     Active Substance: VENLAFAXINE HYDROCHLORIDE
     Indication: Rheumatoid arthritis
     Dosage: 225 MG, DAILY, PROLONGED RELEASE
     Route: 065
  2. VENLAFAXINE [Suspect]
     Active Substance: VENLAFAXINE HYDROCHLORIDE
     Indication: Depression
  3. VENLAFAXINE HYDROCHLORIDE [Suspect]
     Active Substance: VENLAFAXINE HYDROCHLORIDE
     Indication: Rheumatoid arthritis
     Dosage: PROLONGED RELEASE,225 MG, DAILY
     Route: 065
  4. VENLAFAXINE HYDROCHLORIDE [Suspect]
     Active Substance: VENLAFAXINE HYDROCHLORIDE
     Indication: Depression
     Dosage: PROLONGED RELEASE,225 MG, DAILY CUTANEOUS LIQUID
     Route: 065
  5. VENLAFAXINE [Suspect]
     Active Substance: VENLAFAXINE HYDROCHLORIDE
     Indication: Rheumatoid arthritis
     Dosage: 225 UNK
     Route: 065
  6. VENLAFAXINE [Suspect]
     Active Substance: VENLAFAXINE HYDROCHLORIDE
     Indication: Depression
     Dosage: 225 UNK
     Route: 065
  7. CIPROFLOXACIN HYDROCHLORIDE [Suspect]
     Active Substance: CIPROFLOXACIN HYDROCHLORIDE
     Indication: Depression
     Dosage: 1000 MG, DAILY
     Route: 065
     Dates: start: 20100917
  8. CIPROFLOXACIN HYDROCHLORIDE [Suspect]
     Active Substance: CIPROFLOXACIN HYDROCHLORIDE
     Indication: Rheumatoid arthritis
     Route: 065
  9. CIPROFLOXACIN HYDROCHLORIDE [Suspect]
     Active Substance: CIPROFLOXACIN HYDROCHLORIDE
     Indication: Abdominal discomfort
     Dosage: 1000 MG, DAILY
     Route: 065
     Dates: start: 20200917
  10. CIPROFLOXACIN HYDROCHLORIDE [Suspect]
     Active Substance: CIPROFLOXACIN HYDROCHLORIDE
     Indication: Product used for unknown indication
     Dosage: 1000 MG, DAILY
     Route: 065
  11. METHOTREXATE SODIUM [Suspect]
     Active Substance: METHOTREXATE SODIUM
     Indication: Rheumatoid arthritis
     Dosage: 17.5 MILLIGRAM, Q.W., UNK UNK, Q.W., WEEKLY, AT 17.5 (UNKNOWN UNIT),
     Route: 065
     Dates: start: 20100917
  12. METHOTREXATE SODIUM [Suspect]
     Active Substance: METHOTREXATE SODIUM
     Dosage: 17.5 MILLIGRAM, Q.W., UNK UNK, Q.W., WEEKLY, AT 17.5 (UNKNOWN UNIT),
     Route: 065
     Dates: start: 20100917
  13. METHOTREXATE SODIUM [Suspect]
     Active Substance: METHOTREXATE SODIUM
     Dosage: QW
     Route: 065
  14. OMEPRAZOLE [Suspect]
     Active Substance: OMEPRAZOLE
     Indication: Abdominal discomfort
     Dosage: 20 MG ONCE A DAY
     Route: 065
     Dates: start: 20100917
  15. OMEPRAZOLE [Suspect]
     Active Substance: OMEPRAZOLE
     Dosage: 40 MG, QD (20 MG, 2X/DAY) FOR STOMACH
     Route: 065
     Dates: start: 20100917
  16. OMEPRAZOLE [Suspect]
     Active Substance: OMEPRAZOLE
     Dosage: 5 MG, QID (20 MG, QD)
     Route: 065
     Dates: start: 20100917
  17. OMEPRAZOLE [Suspect]
     Active Substance: OMEPRAZOLE
     Dosage: 20 MG, 4 TIMES PER DAY
     Route: 065
     Dates: start: 20100917
  18. OMEPRAZOLE [Suspect]
     Active Substance: OMEPRAZOLE
     Dosage: 20 MG, 4 TIMES PER DAY
     Route: 065
     Dates: start: 20100917
  19. OMEPRAZOLE [Suspect]
     Active Substance: OMEPRAZOLE
     Dosage: 20 MILLIGRAM, ONCE A DAY?20 MG, QD, BATCH AND LOT TESTED AND FOUND WITHIN SPECIFICATIONS, MEDICATION
     Route: 065
     Dates: start: 20200917
  20. OMEPRAZOLE [Suspect]
     Active Substance: OMEPRAZOLE
     Dosage: 20 MG, BID 40 MG, QD 2X/DAY?20 MG, QD, BATCH AND LOT TESTED AND FOUND WITHIN SPECIFICATIONS, MEDICAT
     Route: 065
     Dates: start: 20100917
  21. OMEPRAZOLE [Suspect]
     Active Substance: OMEPRAZOLE
     Dosage: 20 MILLIGRAM, TWO TIMES A DAY
     Route: 065
     Dates: start: 20100917
  22. OMEPRAZOLE [Suspect]
     Active Substance: OMEPRAZOLE
     Dosage: 20 MG, QH (480 MILLIGRAM DAILY; 20 MG, 2X/DAY)
     Route: 065
  23. OMEPRAZOLE [Suspect]
     Active Substance: OMEPRAZOLE
     Dosage: 20 MILLIGRAM, BID
     Route: 065
  24. OMEPRAZOLE [Suspect]
     Active Substance: OMEPRAZOLE
     Dosage: 80 MG, QD
     Route: 065
  25. OMEPRAZOLE [Suspect]
     Active Substance: OMEPRAZOLE
     Dosage: 20 MILLIGRAM QD
     Route: 065
  26. ENBREL [Suspect]
     Active Substance: ETANERCEPT
     Indication: Rheumatoid arthritis
     Dosage: 50 MILLIGRAM, Q.W., WEEKLY, SOLUTION FOR INJECTION IN PRE-FILLED PEN, MYCLIC PENS
     Route: 058
     Dates: start: 20100917, end: 20100917
  27. ENBREL [Suspect]
     Active Substance: ETANERCEPT
     Dosage: 50 MILLIGRAM, Q.W., WEEKLY, SOLUTION FOR INJECTION IN PRE-FILLED PEN, MYCLIC PENS
     Route: 058
     Dates: start: 20100917
  28. ENBREL [Suspect]
     Active Substance: ETANERCEPT
     Dosage: SOLUTION FOR INJECTION IN PRE-FILLED PEN
     Route: 058
     Dates: start: 20210917
  29. ENBREL [Suspect]
     Active Substance: ETANERCEPT
     Dosage: UNK, (MYCLIC PEN) SOLUTION FOR INJECTION IN PRE-FILLED PEN
     Route: 065
  30. ENBREL [Suspect]
     Active Substance: ETANERCEPT
     Dosage: DOSE INTRODUCED
     Route: 065
  31. IRBESARTAN [Suspect]
     Active Substance: IRBESARTAN
     Indication: Abdominal discomfort
     Dosage: 150 G, DAILY. QD
     Route: 065
     Dates: start: 20100917
  32. IRBESARTAN [Suspect]
     Active Substance: IRBESARTAN
     Indication: Depression
     Dosage: 150 MG, ONCE PER DAY
     Route: 065
     Dates: start: 20100912
  33. IRBESARTAN [Suspect]
     Active Substance: IRBESARTAN
     Indication: Product used for unknown indication
     Dosage: 150 G, DAILY. QD
     Route: 065
     Dates: start: 20100912
  34. IRBESARTAN [Suspect]
     Active Substance: IRBESARTAN
     Dosage: 150 G, DAILY. QD
     Route: 065
     Dates: start: 20100917
  35. CARBOCYSTEINE [Suspect]
     Active Substance: CARBOCYSTEINE
     Indication: Rheumatoid arthritis
     Dosage: 750 MG, DAILY
     Route: 065
     Dates: start: 20120917
  36. CARBOCYSTEINE [Suspect]
     Active Substance: CARBOCYSTEINE
     Indication: Product used for unknown indication
     Route: 065
  37. CARBOCYSTEINE [Suspect]
     Active Substance: CARBOCYSTEINE
     Dosage: 750 MG, DAILY
     Route: 065
     Dates: start: 20100917
  38. CARBOCYSTEINE [Suspect]
     Active Substance: CARBOCYSTEINE
     Dosage: 750 MG, DAILY
     Route: 065
     Dates: start: 20210917
  39. CARBOCYSTEINE [Suspect]
     Active Substance: CARBOCYSTEINE
     Dosage: 750 MG, DAILY
     Route: 065
     Dates: start: 20200917
  40. CARBOCYSTEINE [Suspect]
     Active Substance: CARBOCYSTEINE
     Dosage: 750 MILLIGRAM, 1 DOSE PER 1D
     Route: 065
  41. PHYLLOCONTIN [Suspect]
     Active Substance: AMINOPHYLLINE
     Indication: Product used for unknown indication
     Dosage: 400 MG, DAILY, QD
     Route: 065
     Dates: start: 20100917
  42. PHYLLOCONTIN [Suspect]
     Active Substance: AMINOPHYLLINE
     Dosage: 400 MG, DAILY, QD
     Route: 065
     Dates: start: 20200917
  43. GUANIDINE [Suspect]
     Active Substance: GUANIDINE
     Indication: Depression
     Dosage: 1,3-DIPHENYLGUANIDINE
     Route: 065
  44. GUANIDINE [Suspect]
     Active Substance: GUANIDINE
     Indication: Abdominal discomfort
     Dosage: 1,3-DIPHENYLGUANIDINE
     Route: 065
  45. GUANIDINE [Suspect]
     Active Substance: GUANIDINE
     Indication: Product used for unknown indication
     Dosage: 1,3-DIPHENYLGUANIDINE
     Route: 065
  46. ZINC [Suspect]
     Active Substance: ZINC
     Indication: Abdominal discomfort
     Dosage: ZINC DIETHYLDITHIOCARBAMATE
     Route: 065
  47. ZINC [Suspect]
     Active Substance: ZINC
     Indication: Depression
     Dosage: DIETHYLDITHIOCARBAMATE
     Route: 065
  48. ZINC [Suspect]
     Active Substance: ZINC
     Indication: Product used for unknown indication
     Dosage: DIETHYLDITHIOCARBAMATE 750 MG,
     Route: 065
  49. ZINC [Suspect]
     Active Substance: ZINC
     Dosage: UNK
     Route: 065
  50. CARBAMAZEPINE [Suspect]
     Active Substance: CARBAMAZEPINE
     Indication: Depression
     Dosage: 750 MG, QD
     Route: 065
     Dates: start: 20210917
  51. CARBAMAZEPINE [Suspect]
     Active Substance: CARBAMAZEPINE
     Indication: Product used for unknown indication
     Dosage: 750 MG, QD
     Route: 065
     Dates: start: 20200917
  52. CARBAMAZEPINE [Suspect]
     Active Substance: CARBAMAZEPINE
     Dosage: CARBA MIX 750 MILLIGRAM, DAILY
     Route: 065
     Dates: start: 20200917
  53. CARBAMAZEPINE [Suspect]
     Active Substance: CARBAMAZEPINE
     Dosage: 1000 MG, QD
     Route: 065
     Dates: start: 20100917
  54. CARBAMAZEPINE [Suspect]
     Active Substance: CARBAMAZEPINE
     Dosage: 750 MG, QD
     Route: 065
  55. CARBAMAZEPINE [Suspect]
     Active Substance: CARBAMAZEPINE
     Dosage: 1000 MG, QD
     Route: 065
     Dates: start: 20100917
  56. CARBAMAZEPINE [Suspect]
     Active Substance: CARBAMAZEPINE
     Dosage: 750 MG, QD
     Route: 065
     Dates: start: 20210917
  57. CARBAMAZEPINE [Suspect]
     Active Substance: CARBAMAZEPINE
     Route: 065
  58. SULFAGUANIDINE [Suspect]
     Active Substance: SULFAGUANIDINE
     Indication: Abdominal discomfort
     Dosage: 750 MG, QD
     Route: 065
  59. AMINOPHYLLINE [Suspect]
     Active Substance: AMINOPHYLLINE
     Indication: Product used for unknown indication
     Dosage: 400 MG, QD 400 MG, QD, CUMULATIVE DOSE 1466800 MG
     Route: 065
     Dates: start: 20200917
  60. AMINOPHYLLINE [Suspect]
     Active Substance: AMINOPHYLLINE
     Dosage: 400 MG, QD
     Route: 065
     Dates: start: 20100917
  61. AMINOPHYLLINE [Suspect]
     Active Substance: AMINOPHYLLINE
     Dosage: 400 MG, QD
     Route: 065
  62. THEOPHYLLINE [Suspect]
     Active Substance: THEOPHYLLINE
     Indication: Depression
     Dosage: 750 MG, ONCE PER DAY
     Route: 065
  63. AMOXICILLIN [Suspect]
     Active Substance: AMOXICILLIN
     Indication: Abdominal discomfort
     Dosage: 125MG/5ML
     Route: 065
     Dates: start: 20210904
  64. AMOXICILLIN [Suspect]
     Active Substance: AMOXICILLIN
     Dosage: 125MG/5ML
     Route: 065
  65. CHARCOAL ACTIVATED [Suspect]
     Active Substance: ACTIVATED CHARCOAL
     Indication: Product used for unknown indication
     Dosage: 750 MG
     Route: 065
  66. CHARCOAL ACTIVATED [Suspect]
     Active Substance: ACTIVATED CHARCOAL
     Dosage: 750 MG
     Route: 065
  67. CHARCOAL ACTIVATED [Suspect]
     Active Substance: ACTIVATED CHARCOAL
     Dosage: 750 MG
     Route: 065
  68. LACTOBACILLUS RHAMNOSUS [Suspect]
     Active Substance: LACTOBACILLUS RHAMNOSUS
     Indication: Depression
     Route: 065
  69. LACTOBACILLUS RHAMNOSUS [Suspect]
     Active Substance: LACTOBACILLUS RHAMNOSUS
     Indication: Abdominal discomfort
     Route: 065
  70. PROBIOTICS NOS [Suspect]
     Active Substance: PROBIOTICS NOS
     Indication: Depression
     Route: 065
  71. PROBIOTICS NOS [Suspect]
     Active Substance: PROBIOTICS NOS
     Indication: Abdominal discomfort
  72. VENLAFAXINE HYDROCHLORIDE [Suspect]
     Active Substance: VENLAFAXINE HYDROCHLORIDE
     Indication: Depression
     Dosage: VENSIR XL PROLONGED RELEASE. PROLONGED RELEASE, 225 MG, DAILY
     Route: 065
  73. VENLAFAXINE HYDROCHLORIDE [Suspect]
     Active Substance: VENLAFAXINE HYDROCHLORIDE
     Indication: Rheumatoid arthritis
     Dosage: 225 MG, DAILY, ONCE A DAY, PROLONGED RELEASE
     Route: 065
  74. VENLAFAXINE HYDROCHLORIDE [Suspect]
     Active Substance: VENLAFAXINE HYDROCHLORIDE
     Indication: Abdominal discomfort
  75. METHOTREXATE [Suspect]
     Active Substance: METHOTREXATE
     Indication: Rheumatoid arthritis
     Dosage: UNKNOWN, WEEKLY, QW (AT 17.5, WEEKLY)
     Route: 065
     Dates: start: 20100917
  76. METHOTREXATE [Suspect]
     Active Substance: METHOTREXATE
     Dosage: 17.5 MG, QW
     Route: 065
     Dates: start: 20100917
  77. METHOTREXATE [Suspect]
     Active Substance: METHOTREXATE
     Dosage: QW
     Route: 065
  78. METHOTREXATE [Suspect]
     Active Substance: METHOTREXATE
     Dosage: UNKNOWN, WEEKLY, QW (AT 17.5, WEEKLY)
     Route: 065
  79. METHOTREXATE [Suspect]
     Active Substance: METHOTREXATE
     Dosage: QW
     Route: 065
  80. BIFIDOBACTERIUM LONGUM [Suspect]
     Active Substance: BIFIDOBACTERIUM LONGUM
     Indication: Abdominal discomfort
     Route: 065
  81. BIFIDOBACTERIUM LONGUM [Suspect]
     Active Substance: BIFIDOBACTERIUM LONGUM
     Indication: Depression
     Route: 065
  82. BIFIDOBACTERIUM LONGUM [Suspect]
     Active Substance: BIFIDOBACTERIUM LONGUM
     Route: 065
     Dates: start: 20100917
  83. BIFIDOBACTERIUM LONGUM [Suspect]
     Active Substance: BIFIDOBACTERIUM LONGUM
     Route: 065
     Dates: start: 20200917
  84. BIFIDOBACTERIUM LONGUM [Suspect]
     Active Substance: BIFIDOBACTERIUM LONGUM
     Route: 065
     Dates: start: 20210917
  85. BIFIDOBACTERIUM LONGUM [Suspect]
     Active Substance: BIFIDOBACTERIUM LONGUM
     Route: 065
     Dates: start: 20120917
  86. CABERGOLINE [Concomitant]
     Active Substance: CABERGOLINE
     Indication: Empty sella syndrome
     Dosage: 1000 MG, DAILY
     Dates: start: 20100917
  87. CABERGOLINE [Concomitant]
     Active Substance: CABERGOLINE
     Indication: Pituitary tumour
     Route: 065
  88. CABERGOLINE [Concomitant]
     Active Substance: CABERGOLINE
     Indication: Product used for unknown indication
  89. ORUVAIL [Concomitant]
     Active Substance: KETOPROFEN
     Indication: Empty sella syndrome
     Route: 065
  90. LEVOTHYROXINE [Concomitant]
     Active Substance: LEVOTHYROXINE
     Indication: Abdominal discomfort
     Route: 016
  91. LEVOTHYROXINE [Concomitant]
     Active Substance: LEVOTHYROXINE
     Indication: Product used for unknown indication
     Route: 065
  92. EZETIMIBE [Concomitant]
     Active Substance: EZETIMIBE
     Indication: Product used for unknown indication
     Dosage: 50 MG, QW, MYCLIC
     Dates: start: 20100917
  93. EZETIMIBE [Concomitant]
     Active Substance: EZETIMIBE
     Dosage: 50 MG, QW, MYCLIC
     Dates: start: 20210917
  94. EZETIMIBE [Concomitant]
     Active Substance: EZETIMIBE
     Dosage: UNK
  95. FOLIC ACID [Concomitant]
     Active Substance: FOLIC ACID
     Indication: Product used for unknown indication
  96. CETIRIZINE [Concomitant]
     Active Substance: CETIRIZINE HYDROCHLORIDE
     Indication: Abdominal discomfort
  97. CETIRIZINE [Concomitant]
     Active Substance: CETIRIZINE HYDROCHLORIDE
     Indication: Product used for unknown indication
  98. BENDROFLUMETHIAZIDE [Concomitant]
     Active Substance: BENDROFLUMETHIAZIDE
     Indication: Pituitary tumour
     Route: 065
  99. BENDROFLUMETHIAZIDE [Concomitant]
     Active Substance: BENDROFLUMETHIAZIDE
     Indication: Depression
     Route: 065
  100. BENDROFLUMETHIAZIDE [Concomitant]
     Active Substance: BENDROFLUMETHIAZIDE
     Route: 065
  101. ACTIVATED CHARCOAL [Concomitant]
     Active Substance: ACTIVATED CHARCOAL
     Indication: Product used for unknown indication
  102. ACTIVATED CHARCOAL [Concomitant]
     Active Substance: ACTIVATED CHARCOAL
  103. CHARCOAL ACTIVATED [Concomitant]
     Active Substance: ACTIVATED CHARCOAL
     Indication: Product used for unknown indication
     Dosage: 750 MG
     Route: 065
  104. DOXYCYCLINE [Concomitant]
     Active Substance: DOXYCYCLINE
     Indication: Pulmonary pain
  105. THEOPHYLLINE ANHYDROUS [Concomitant]
     Active Substance: THEOPHYLLINE ANHYDROUS
     Indication: Product used for unknown indication
     Dosage: 750 MG, QD

REACTIONS (13)
  - Knee arthroplasty [Unknown]
  - Abdominal discomfort [Unknown]
  - Amyloid arthropathy [Unknown]
  - Obesity [Unknown]
  - Arthropathy [Unknown]
  - Drug abuse [Unknown]
  - Pulmonary pain [Unknown]
  - Lower respiratory tract infection [Not Recovered/Not Resolved]
  - Rash [Not Recovered/Not Resolved]
  - Overdose [Unknown]
  - Intentional product misuse [Unknown]
  - Product dose omission issue [Unknown]
  - Off label use [Unknown]

NARRATIVE: CASE EVENT DATE: 20201001
